FAERS Safety Report 9242667 (Version 1)
Quarter: 2013Q2

REPORT INFORMATION
  Report Type: Spontaneous
  Country: GB (occurrence: GB)
  Receive Date: 20130419
  Receipt Date: 20130419
  Transmission Date: 20140414
  Serious: Yes (Other)
  Sender: FDA-Public Use
  Company Number: GB-GLAXOSMITHKLINE-B0884612A

PATIENT
  Age: 48 Year
  Sex: Male

DRUGS (3)
  1. ACITRETIN [Suspect]
     Indication: DERMATITIS
     Dosage: 10MG PER DAY
     Route: 048
     Dates: start: 20120218, end: 201302
  2. SIMVASTATIN [Concomitant]
     Indication: BLOOD CHOLESTEROL INCREASED
     Route: 065
  3. CLOBETASOL [Concomitant]
     Indication: DERMATITIS

REACTIONS (3)
  - Paranoia [Recovering/Resolving]
  - Depressed mood [Recovering/Resolving]
  - Social avoidant behaviour [Recovering/Resolving]
